FAERS Safety Report 26122110 (Version 1)
Quarter: 2025Q4

REPORT INFORMATION
  Report Type: Spontaneous
  Country: US (occurrence: None)
  Receive Date: 20251204
  Receipt Date: 20251204
  Transmission Date: 20260117
  Serious: No
  Sender: FDA-CTU
  Company Number: None

PATIENT
  Age: 45 Year
  Sex: Female

DRUGS (1)
  1. XOLAIR [Suspect]
     Active Substance: OMALIZUMAB

REACTIONS (7)
  - Pain [None]
  - Dizziness [None]
  - Speech disorder [None]
  - Dysarthria [None]
  - Asthenia [None]
  - Blindness [None]
  - Halo vision [None]

NARRATIVE: CASE EVENT DATE: 20251105
